FAERS Safety Report 14566868 (Version 2)
Quarter: 2018Q1

REPORT INFORMATION
  Report Type: Report from Study
  Country: JP (occurrence: JP)
  Receive Date: 20180223
  Receipt Date: 20180316
  Transmission Date: 20180509
  Serious: Yes (Other)
  Sender: FDA-Public Use
  Company Number: JP-EISAI MEDICAL RESEARCH-EC-2018-036306

PATIENT
  Age: 49 Year
  Sex: Male
  Weight: 38 kg

DRUGS (12)
  1. FYCOMPA [Suspect]
     Active Substance: PERAMPANEL
     Indication: PARTIAL SEIZURES
     Route: 048
     Dates: start: 20170809, end: 20170822
  2. FYCOMPA [Suspect]
     Active Substance: PERAMPANEL
     Route: 048
     Dates: start: 20170823, end: 20170905
  3. FYCOMPA [Suspect]
     Active Substance: PERAMPANEL
     Route: 048
     Dates: start: 20171101
  4. NAUZELIN [Concomitant]
     Active Substance: DOMPERIDONE
  5. AMITIZA [Concomitant]
     Active Substance: LUBIPROSTONE
  6. LAXOBERON [Concomitant]
     Active Substance: SODIUM PICOSULFATE
  7. MAGNESIUM OXIDE. [Concomitant]
     Active Substance: MAGNESIUM OXIDE
  8. FYCOMPA [Suspect]
     Active Substance: PERAMPANEL
     Route: 048
     Dates: start: 20170906, end: 20170919
  9. FYCOMPA [Suspect]
     Active Substance: PERAMPANEL
     Route: 048
     Dates: start: 20170920, end: 20171031
  10. DEPAKENE [Concomitant]
     Active Substance: VALPROIC ACID
  11. GASMOTIN [Concomitant]
     Active Substance: MOSAPRIDE CITRATE
  12. BAKTAR [Concomitant]
     Active Substance: SULFAMETHOXAZOLE\TRIMETHOPRIM

REACTIONS (1)
  - Oxygen saturation decreased [Recovering/Resolving]

NARRATIVE: CASE EVENT DATE: 20170908
